FAERS Safety Report 8508842-8 (Version None)
Quarter: 2012Q3

REPORT INFORMATION
  Report Type: 
  Country: None (occurrence: None)
  Receive Date: 20120713
  Receipt Date: 20120710
  Transmission Date: 20120928
  Serious: Yes (Hospitalization, Other)
  Sender: FDA-Public Use
  Company Number: US-PFIZER INC-2012137035

PATIENT
  Sex: Female
  Weight: 49 kg

DRUGS (3)
  1. DILANTIN KAPSEAL [Suspect]
     Indication: GRAND MAL CONVULSION
     Dosage: 200 MG, TWO CAPSULES PER ORAL AT BEDTIME
     Route: 048
     Dates: start: 20110810
  2. DILANTIN [Suspect]
     Indication: GRAND MAL CONVULSION
     Dosage: 100 MG, 2X/DAY
     Route: 042
     Dates: start: 20110807
  3. DILANTIN-125 [Suspect]
     Indication: GRAND MAL CONVULSION
     Dosage: 150 MG, UNK
     Dates: start: 20111001, end: 20111001

REACTIONS (1)
  - STEVENS-JOHNSON SYNDROME [None]
